FAERS Safety Report 6058571-8 (Version None)
Quarter: 2009Q1

REPORT INFORMATION
  Report Type: 
  Country: None (occurrence: None)
  Receive Date: 20090130
  Receipt Date: 20090123
  Transmission Date: 20090719
  Serious: Yes (Hospitalization)
  Sender: FDA-Public Use
  Company Number: IT-JNJFOC-20090103414

PATIENT
  Sex: Female

DRUGS (5)
  1. DURAGESIC-100 [Suspect]
     Indication: PAIN
     Route: 062
  2. XANAX [Concomitant]
     Indication: DRUG USE FOR UNKNOWN INDICATION
  3. CIPRALEX [Concomitant]
     Indication: DRUG USE FOR UNKNOWN INDICATION
  4. PANCREX [Concomitant]
     Indication: DRUG USE FOR UNKNOWN INDICATION
  5. MS CONTIN [Concomitant]
     Indication: DRUG USE FOR UNKNOWN INDICATION

REACTIONS (5)
  - ANAPHYLACTIC REACTION [None]
  - DYSPNOEA [None]
  - ERYTHEMA [None]
  - LARYNGEAL OEDEMA [None]
  - PRURITUS [None]
